FAERS Safety Report 7341633-2 (Version None)
Quarter: 2011Q1

REPORT INFORMATION
  Report Type: 
  Country: None (occurrence: None)
  Receive Date: 20110228
  Receipt Date: 20110217
  Transmission Date: 20110831
  Serious: Yes (Other)
  Sender: FDA-Public Use
  Company Number: GER/UKI/11/0017462

PATIENT
  Age: 75 Year
  Sex: Female
  Weight: 54 kg

DRUGS (3)
  1. XARELTO [Suspect]
     Indication: KNEE ARTHROPLASTY
  2. RAMIPRIL [Concomitant]
  3. AMLODIPINE [Suspect]
     Indication: HYPERTENSION
     Dosage: 5 MG, 1 IN 1 D

REACTIONS (1)
  - DEEP VEIN THROMBOSIS [None]
